FAERS Safety Report 6129531-3 (Version None)
Quarter: 2009Q1

REPORT INFORMATION
  Report Type: 
  Country: None (occurrence: None)
  Receive Date: 20090324
  Receipt Date: 20090319
  Transmission Date: 20090719
  Serious: Yes (Other)
  Sender: FDA-Public Use
  Company Number: CH-WYE-G03098209

PATIENT
  Age: 40 Year
  Sex: Female

DRUGS (3)
  1. EFFEXOR [Suspect]
     Route: 048
     Dates: start: 20080101, end: 20090210
  2. EFFEXOR [Suspect]
     Dates: start: 20090201
  3. TRITTICO [Concomitant]
     Route: 048
     Dates: start: 20080101

REACTIONS (4)
  - ALANINE AMINOTRANSFERASE INCREASED [None]
  - ARTHRALGIA [None]
  - ASPARTATE AMINOTRANSFERASE INCREASED [None]
  - ERYTHEMA INFECTIOSUM [None]
